FAERS Safety Report 11151105 (Version 1)
Quarter: 2015Q2

REPORT INFORMATION
  Report Type: Spontaneous
  Country: GB (occurrence: None)
  Receive Date: 20150528
  Receipt Date: 20150528
  Transmission Date: 20150821
  Serious: Yes (Other)
  Sender: FDA-Public Use
  Company Number: GB-H14001-15-00771

PATIENT
  Age: 24 Year
  Sex: Male

DRUGS (1)
  1. VANCOMYCIN (VANCOMYCIN) (UNKNOWN) (VANCOMYCIN) [Suspect]
     Active Substance: VANCOMYCIN
     Indication: INFECTIOUS PLEURAL EFFUSION
     Dosage: 4.5 GM (1.5 GM,3 IN 1 D)
     Route: 041
     Dates: start: 20150507, end: 20150507

REACTIONS (4)
  - Rash [None]
  - Incorrect drug administration rate [None]
  - Red man syndrome [None]
  - Hypersensitivity [None]

NARRATIVE: CASE EVENT DATE: 20150507
